FAERS Safety Report 5780255-1 (Version None)
Quarter: 2008Q2

REPORT INFORMATION
  Report Type: 
  Country: None (occurrence: None)
  Receive Date: 20080620
  Receipt Date: 20080616
  Transmission Date: 20081010
  Serious: Yes (Other)
  Sender: FDA-Public Use
  Company Number: PHEH2007US10187

PATIENT
  Sex: Female
  Weight: 52.154 kg

DRUGS (6)
  1. COMBIPATCH [Suspect]
     Indication: MENOPAUSAL SYMPTOMS
     Dosage: 0.5 /0.14 MG/DAY, TIWCE WEEKLY
     Route: 062
     Dates: start: 19991201
  2. COMBIPATCH [Suspect]
     Dosage: UNK
     Route: 062
     Dates: start: 20000101, end: 20020701
  3. PREMPRO [Suspect]
     Dosage: UNK
     Dates: start: 19950801
  4. PREMPRO [Suspect]
     Dosage: UNK
     Dates: start: 19950901, end: 19991001
  5. PREMARIN [Suspect]
     Indication: MENOPAUSAL SYMPTOMS
     Dosage: 0.625 MG/2.5 MG, UNK
     Route: 048
     Dates: start: 19960301, end: 19961201
  6. PROVERA [Suspect]
     Indication: MENOPAUSAL SYMPTOMS
     Dosage: UNK
     Route: 048
     Dates: start: 19960301, end: 19961101

REACTIONS (16)
  - ATROPHIC VULVOVAGINITIS [None]
  - BREAST CANCER IN SITU [None]
  - CERVICAL DYSPLASIA [None]
  - CERVICITIS [None]
  - CLUSTER HEADACHE [None]
  - EAR PAIN [None]
  - HOT FLUSH [None]
  - HYPERAESTHESIA [None]
  - HYPOAESTHESIA [None]
  - INSOMNIA [None]
  - MALIGNANT BREAST LUMP REMOVAL [None]
  - MASTECTOMY [None]
  - MYALGIA [None]
  - OSTEOPENIA [None]
  - SMEAR CERVIX ABNORMAL [None]
  - VULVOVAGINAL DRYNESS [None]
